FAERS Safety Report 7441670-3 (Version None)
Quarter: 2011Q2

REPORT INFORMATION
  Report Type: 
  Country: None (occurrence: None)
  Receive Date: 20110425
  Receipt Date: 20110425
  Transmission Date: 20111010
  Serious: Yes (Hospitalization)
  Sender: FDA-Public Use
  Company Number: None

PATIENT
  Sex: Female
  Weight: 90.7194 kg

DRUGS (1)
  1. RECLAST [Suspect]
     Indication: OSTEOPENIA
     Dosage: 5MG 1 IV
     Route: 042
     Dates: start: 20110423, end: 20110423

REACTIONS (3)
  - MYALGIA [None]
  - PYREXIA [None]
  - HEADACHE [None]
